FAERS Safety Report 18573232 (Version 1)
Quarter: 2020Q4

REPORT INFORMATION
  Report Type: Spontaneous
  Country: US (occurrence: US)
  Receive Date: 20201203
  Receipt Date: 20201203
  Transmission Date: 20210114
  Serious: No
  Sender: FDA-Public Use
  Company Number: US-009507513-2011USA015353

PATIENT
  Sex: Female

DRUGS (1)
  1. NEXPLANON [Suspect]
     Active Substance: ETONOGESTREL
     Indication: CONTRACEPTION
     Dosage: 1 ROD EVERY 3 YEARS
     Route: 059
     Dates: start: 20200711

REACTIONS (3)
  - Menorrhagia [Not Recovered/Not Resolved]
  - Device breakage [Not Recovered/Not Resolved]
  - Implant site bruising [Recovered/Resolved]

NARRATIVE: CASE EVENT DATE: 2020
